FAERS Safety Report 17347247 (Version 1)
Quarter: 2020Q1

REPORT INFORMATION
  Report Type: Spontaneous
  Country: JP (occurrence: JP)
  Receive Date: 20200130
  Receipt Date: 20200130
  Transmission Date: 20200409
  Serious: Yes (Hospitalization, Other)
  Sender: FDA-Public Use
  Company Number: JP-GLAXOSMITHKLINE-JP2020JPN015166

PATIENT
  Age: 42 Year
  Sex: Female

DRUGS (4)
  1. ZOTEPINE [Concomitant]
     Active Substance: ZOTEPINE
     Indication: BIPOLAR DISORDER
     Dosage: UNK
     Route: 048
  2. ZOTEPINE [Concomitant]
     Active Substance: ZOTEPINE
     Dosage: 1975 MG, SINGLE
     Route: 048
  3. LAMICTAL [Suspect]
     Active Substance: LAMOTRIGINE
     Indication: BIPOLAR DISORDER
     Dosage: UNK
     Route: 048
  4. LAMICTAL [Suspect]
     Active Substance: LAMOTRIGINE
     Dosage: 7200 MG, SINGLE
     Route: 048

REACTIONS (6)
  - Fall [Unknown]
  - Intentional overdose [Unknown]
  - Toxicity to various agents [Unknown]
  - Suicide attempt [Unknown]
  - Depressed level of consciousness [Recovered/Resolved]
  - Altered state of consciousness [Recovered/Resolved]
